FAERS Safety Report 7075377-1 (Version None)
Quarter: 2010Q4

REPORT INFORMATION
  Report Type: 
  Country: None (occurrence: None)
  Receive Date: 20101030
  Receipt Date: 20100921
  Transmission Date: 20110411
  Serious: No
  Sender: FDA-Public Use
  Company Number: US-WYE-H16975810

PATIENT
  Age: 35 Year
  Sex: Female
  Weight: 59.93 kg

DRUGS (3)
  1. PRISTIQ [Suspect]
     Indication: AFFECTIVE DISORDER
     Dosage: UNSPECIFIED
     Route: 048
     Dates: start: 20090623
  2. AMBIEN [Concomitant]
  3. ABILIFY [Concomitant]

REACTIONS (1)
  - CATARACT [None]
